FAERS Safety Report 4373042-2 (Version None)
Quarter: 2004Q2

REPORT INFORMATION
  Report Type: 
  Country: None (occurrence: None)
  Receive Date: 20040603
  Receipt Date: 20040518
  Transmission Date: 20050107
  Serious: Yes (Hospitalization)
  Sender: FDA-Public Use
  Company Number: USA040362951

PATIENT
  Age: 79 Year
  Sex: Female

DRUGS (2)
  1. FORTEO [Suspect]
     Dates: start: 20040305
  2. TYLENOL [Concomitant]

REACTIONS (6)
  - ACTIVITIES OF DAILY LIVING IMPAIRED [None]
  - FRACTURE [None]
  - HEADACHE [None]
  - MUSCLE SPASMS [None]
  - PAIN EXACERBATED [None]
  - PHARMACEUTICAL PRODUCT COMPLAINT [None]
